FAERS Safety Report 7942288-6 (Version None)
Quarter: 2011Q4

REPORT INFORMATION
  Report Type: 
  Country: None (occurrence: None)
  Receive Date: 20111128
  Receipt Date: 20111021
  Transmission Date: 20120403
  Serious: No
  Sender: FDA-Public Use
  Company Number: US-ABBOTT-11P-163-0867942-00

PATIENT
  Weight: 73.548 kg

DRUGS (5)
  1. ANDROGEL [Suspect]
     Dosage: 3 PUMPS PER DAY
     Dates: start: 20111001
  2. KENALOG [Concomitant]
     Indication: HYPERSENSITIVITY
  3. LORAZEPAM [Concomitant]
     Indication: ANXIETY
  4. ANDROGEL [Suspect]
     Indication: BLOOD TESTOSTERONE DECREASED
     Dosage: 2 PUMPS PER DAY
     Dates: start: 20110701, end: 20111001
  5. NORCO [Concomitant]
     Indication: MUSCULOSKELETAL PAIN

REACTIONS (5)
  - THERAPEUTIC RESPONSE UNEXPECTED [None]
  - MEDICATION ERROR [None]
  - ENERGY INCREASED [None]
  - BLOOD TESTOSTERONE DECREASED [None]
  - DRUG ADMINISTERED AT INAPPROPRIATE SITE [None]
